FAERS Safety Report 9199634 (Version 1)
Quarter: 2013Q1

REPORT INFORMATION
  Report Type: Spontaneous
  Country: US (occurrence: US)
  Receive Date: 20130329
  Receipt Date: 20130329
  Transmission Date: 20140127
  Serious: No
  Sender: FDA-Public Use
  Company Number: US-GLAXOSMITHKLINE-A1015108A

PATIENT
  Age: 48 Year
  Sex: Female

DRUGS (14)
  1. BENLYSTA [Suspect]
     Indication: SYSTEMIC LUPUS ERYTHEMATOSUS
     Dosage: 1INJ EVERY TWO WEEKS
     Route: 042
     Dates: start: 20130301
  2. IMURAN [Concomitant]
  3. PLAQUENIL [Concomitant]
  4. MEDROL [Concomitant]
  5. LISINOPRIL [Concomitant]
  6. STADOL [Concomitant]
  7. CLONAZEPAM [Concomitant]
  8. SKELAXIN [Concomitant]
  9. FENTANYL PATCH [Concomitant]
  10. PRILOSEC [Concomitant]
  11. LIBRAX [Concomitant]
  12. MIRAPEX [Concomitant]
  13. VICODIN [Concomitant]
  14. HYDROXYCHLOROQUINE [Concomitant]

REACTIONS (6)
  - Headache [Unknown]
  - Nausea [Unknown]
  - Dizziness [Unknown]
  - Pain in extremity [Unknown]
  - Musculoskeletal stiffness [Unknown]
  - Ill-defined disorder [Unknown]
